FAERS Safety Report 7936333-1 (Version None)
Quarter: 2011Q4

REPORT INFORMATION
  Report Type: 
  Country: None (occurrence: None)
  Receive Date: 20111123
  Receipt Date: 20111110
  Transmission Date: 20120403
  Serious: Yes (Hospitalization)
  Sender: FDA-Public Use
  Company Number: US-MYLANLABS-2011S1023638

PATIENT
  Age: 71 Year
  Sex: Female

DRUGS (12)
  1. VALPROIC ACID [Interacting]
     Route: 042
  2. WARFARIN SODIUM [Interacting]
     Dosage: 2.5MG; THEN 0.75MG
     Route: 065
  3. WARFARIN SODIUM [Interacting]
     Dosage: 0.75MG
     Route: 050
  4. DEXAMETHASONE [Suspect]
     Indication: BRAIN OEDEMA
     Dosage: 2MG DAILY; THEN 4MG EVERY 6H
     Route: 065
  5. MIDAZOLAM [Concomitant]
     Indication: COMPLEX PARTIAL SEIZURES
     Dosage: 3MG
     Route: 042
  6. PRAVASTATIN [Concomitant]
     Dosage: 20MG DAILY
     Route: 048
  7. LEVETIRACETAM [Concomitant]
     Route: 042
  8. WARFARIN SODIUM [Interacting]
     Indication: DEEP VEIN THROMBOSIS
     Dosage: 2.5MG MON-FRI, 5MG SAT-SUN; THEN 2.5MG AFTER ADMISSION
     Route: 048
  9. VALPROIC ACID [Interacting]
     Indication: COMPLEX PARTIAL SEIZURES
     Dosage: 1100MG LOADING DOSE (20MG/KG); THEN 500MG TWICE DAILY
     Route: 042
  10. LEVETIRACETAM [Concomitant]
     Indication: COMPLEX PARTIAL SEIZURES
     Dosage: LOADING DOSE; THEN 1G
     Route: 042
  11. DEXAMETHASONE [Suspect]
     Route: 042
  12. LEVETIRACETAM [Concomitant]
     Dosage: 1G; THEN 2.5G TWICE DAILY
     Route: 042

REACTIONS (2)
  - INTERNATIONAL NORMALISED RATIO INCREASED [None]
  - DRUG INTERACTION [None]
